FAERS Safety Report 6423291-4 (Version None)
Quarter: 2009Q4

REPORT INFORMATION
  Report Type: 
  Country: None (occurrence: None)
  Receive Date: 20091028
  Receipt Date: 20091021
  Transmission Date: 20100525
  Serious: Yes (Hospitalization, Other)
  Sender: FDA-Public Use
  Company Number: ADR47332009

PATIENT
  Age: 40 Year
  Sex: Female

DRUGS (6)
  1. CITALOPRAM HYDROBROMIDE [Suspect]
     Indication: DEPRESSED MOOD
     Dosage: 40 MG ORAL
     Route: 048
  2. AMITRIPTYLINE [Concomitant]
  3. CLOZARIL [Concomitant]
  4. OMEPRAZOLE [Concomitant]
  5. PRIADEL [Concomitant]
  6. BALSALAZIDE [Concomitant]

REACTIONS (6)
  - DRUG DOSE OMISSION [None]
  - INTESTINAL OBSTRUCTION [None]
  - NEUTROPHIL COUNT INCREASED [None]
  - PLATELET COUNT INCREASED [None]
  - PULMONARY THROMBOSIS [None]
  - WHITE BLOOD CELL COUNT INCREASED [None]
